FAERS Safety Report 21744510 (Version 3)
Quarter: 2023Q1

REPORT INFORMATION
  Report Type: Report from Study
  Country: US (occurrence: US)
  Receive Date: 20221218
  Receipt Date: 20230327
  Transmission Date: 20230417
  Serious: No
  Sender: FDA-Public Use
  Company Number: US-ABBVIE-4240794

PATIENT
  Sex: Female

DRUGS (3)
  1. IMBRUVICA [Suspect]
     Active Substance: IBRUTINIB
     Indication: Non-Hodgkin^s lymphoma
     Route: 048
     Dates: start: 20210924
  2. LEVOTHYROXINE [Concomitant]
     Active Substance: LEVOTHYROXINE
     Indication: Product used for unknown indication
  3. LEVOTHYROXINE [Concomitant]
     Active Substance: LEVOTHYROXINE
     Indication: Product used for unknown indication

REACTIONS (14)
  - Thyroid disorder [Unknown]
  - Alopecia [Unknown]
  - Rash [Unknown]
  - Onychoclasis [Unknown]
  - Nail bed bleeding [Unknown]
  - Alopecia [Unknown]
  - Feeling abnormal [Unknown]
  - Nervous system disorder [Unknown]
  - Anxiety [Unknown]
  - Abdominal discomfort [Unknown]
  - Feeling cold [Unknown]
  - Nail infection [Unknown]
  - Nasopharyngitis [Unknown]
  - Pruritus [Unknown]
